FAERS Safety Report 13225274 (Version 4)
Quarter: 2020Q2

REPORT INFORMATION
  Report Type: Spontaneous
  Country: CH (occurrence: CH)
  Receive Date: 20170213
  Receipt Date: 20200407
  Transmission Date: 20200713
  Serious: Yes (Death, Life-Threatening, Hospitalization, Other)
  Sender: FDA-Public Use
  Company Number: CH-BRISTOL-MYERS SQUIBB COMPANY-BMS-2017-010970

PATIENT
  Age: 32 Year
  Sex: Female

DRUGS (6)
  1. FORTECORTIN [DEXAMETHASONE] [Concomitant]
     Active Substance: DEXAMETHASONE
     Indication: METASTASES TO CENTRAL NERVOUS SYSTEM
     Dosage: 003 MG, QD
     Route: 065
     Dates: start: 2016
  2. APYDAN [OXCARBAZEPINE] [Suspect]
     Active Substance: OXCARBAZEPINE
     Indication: SEIZURE
     Dosage: 450 MILLIGRAM
     Route: 048
     Dates: start: 201701, end: 20170125
  3. FRAGMIN [Suspect]
     Active Substance: DALTEPARIN SODIUM
     Indication: THROMBOSIS PROPHYLAXIS
     Dosage: 5000 INTERNATIONAL UNIT
     Route: 058
     Dates: start: 20160125, end: 20170127
  4. OPDIVO [Suspect]
     Active Substance: NIVOLUMAB
     Indication: NEUROENDOCRINE TUMOUR OF THE LUNG METASTATIC
     Route: 041
     Dates: start: 20161208, end: 20170102
  5. DAFALGAN [Suspect]
     Active Substance: ACETAMINOPHEN
     Indication: HEADACHE
     Dosage: UNK
     Route: 048
  6. IRFEN [Suspect]
     Active Substance: IBUPROFEN
     Indication: HEADACHE
     Dosage: 1 DOSAGE FORM
     Route: 048
     Dates: start: 20170125, end: 20170125

REACTIONS (5)
  - Post procedural haemorrhage [Unknown]
  - Autoimmune hepatitis [Fatal]
  - Rash macular [Unknown]
  - Intentional product use issue [Unknown]
  - Resuscitation [Unknown]

NARRATIVE: CASE EVENT DATE: 20160127
